FAERS Safety Report 9454155 (Version 1)
Quarter: 2013Q3

REPORT INFORMATION
  Report Type: Spontaneous
  Country: US (occurrence: None)
  Receive Date: 20130809
  Receipt Date: 20130809
  Transmission Date: 20140515
  Serious: Yes (Other)
  Sender: FDA-Public Use
  Company Number: None

PATIENT
  Age: 53 Year
  Sex: Female
  Weight: 101.61 kg

DRUGS (1)
  1. LAMICTAL [Suspect]

REACTIONS (2)
  - Hot flush [None]
  - Rash [None]
